FAERS Safety Report 7607033-2 (Version None)
Quarter: 2011Q3

REPORT INFORMATION
  Report Type: 
  Country: None (occurrence: None)
  Receive Date: 20110713
  Receipt Date: 20110603
  Transmission Date: 20111222
  Serious: Yes (Hospitalization)
  Sender: FDA-Public Use
  Company Number: GB-JNJFOC-20110509893

PATIENT
  Sex: Male
  Weight: 103 kg

DRUGS (2)
  1. AZATHIOPRINE [Concomitant]
     Dates: start: 20030623
  2. INFLIXIMAB, RECOMBINANT [Suspect]
     Indication: RHEUMATOID ARTHRITIS
     Route: 042
     Dates: start: 20030623

REACTIONS (3)
  - PULMONARY CONGESTION [None]
  - CHEST PAIN [None]
  - ATRIAL FIBRILLATION [None]
